FAERS Safety Report 8349496-3 (Version None)
Quarter: 2012Q2

REPORT INFORMATION
  Report Type: 
  Country: None (occurrence: None)
  Receive Date: 20120510
  Receipt Date: 20101004
  Transmission Date: 20120825
  Serious: No
  Sender: FDA-Public Use
  Company Number: US-TEVA-2010005276

PATIENT
  Sex: Male
  Weight: 80.812 kg

DRUGS (14)
  1. DICLOFENAC [Concomitant]
  2. FOLIC ACID [Concomitant]
  3. DICYCLOMINE [Concomitant]
  4. HYDROXYZINE [Concomitant]
  5. HYDROCODONE BITARTRATE AND ACETAMINOPHEN [Concomitant]
  6. NUVIGIL [Suspect]
     Indication: SOMNOLENCE
     Dosage: 250 MILLIGRAM;
     Route: 048
     Dates: start: 20100914, end: 20100901
  7. LISINOPRIL [Concomitant]
  8. GABAPENTIN [Concomitant]
  9. ACTOS [Concomitant]
  10. GLYBURIDE [Concomitant]
  11. DIPHENOXYLATE AND ATROPINE [Concomitant]
  12. JANUNIA [Concomitant]
  13. SIMVASTATIN [Concomitant]
  14. PRILOSEC [Concomitant]

REACTIONS (1)
  - HALLUCINATION [None]
